FAERS Safety Report 13752865 (Version 1)
Quarter: 2017Q3

REPORT INFORMATION
  Report Type: Spontaneous
  Country: JP (occurrence: JP)
  Receive Date: 20170713
  Receipt Date: 20170713
  Transmission Date: 20171127
  Serious: Yes (Other)
  Sender: FDA-Public Use
  Company Number: JP-MYLANLABS-2017M1041918

PATIENT

DRUGS (4)
  1. ADZOPIP [Concomitant]
     Indication: ARTHRITIS BACTERIAL
     Dosage: FOR 14 DAYS
     Route: 042
  2. AZACITIDINE. [Suspect]
     Active Substance: AZACITIDINE
     Indication: MYELODYSPLASTIC SYNDROME
     Dosage: 75 MG/M2/DAY FOR 5 DAYS; TOTAL 3 CYCLES
     Route: 058
  3. VANCOMYCIN [Concomitant]
     Active Substance: VANCOMYCIN
     Indication: ARTHRITIS BACTERIAL
     Dosage: FOR 14 DAYS
     Route: 042
  4. LEVOFLOXACIN. [Concomitant]
     Active Substance: LEVOFLOXACIN
     Indication: INFECTION PROPHYLAXIS
     Route: 048

REACTIONS (1)
  - Acute lung injury [Recovered/Resolved]
